FAERS Safety Report 9856080 (Version 2)
Quarter: 2014Q1

REPORT INFORMATION
  Report Type: Report from Study
  Country: US (occurrence: US)
  Receive Date: 20140130
  Receipt Date: 20140307
  Transmission Date: 20141002
  Serious: Yes (Other)
  Sender: FDA-Public Use
  Company Number: PHEH2014US002035

PATIENT
  Sex: Female

DRUGS (2)
  1. ILARIS [Suspect]
     Dosage: 0.8 ML, EVERY 8 WEEKS
     Route: 058
  2. ILARIS [Suspect]
     Dosage: 0.7 ML, UNK
     Route: 058

REACTIONS (4)
  - Weight increased [Unknown]
  - Condition aggravated [Unknown]
  - Rash [Unknown]
  - Fatigue [Unknown]
